FAERS Safety Report 10141880 (Version 4)
Quarter: 2014Q2

REPORT INFORMATION
  Report Type: Spontaneous
  Country: US (occurrence: US)
  Receive Date: 20140429
  Receipt Date: 20140528
  Transmission Date: 20141212
  Serious: Yes (Hospitalization, Disabling, Other)
  Sender: FDA-Public Use
  Company Number: US-MYLANLABS-2014S1009457

PATIENT
  Age: 69 Year
  Sex: Male
  Weight: 121.56 kg

DRUGS (25)
  1. SPIRONOLACTONE [Suspect]
     Dates: start: 20140416, end: 20140419
  2. ASPIRIN [Suspect]
     Route: 048
  3. CELEBREX [Suspect]
     Route: 048
  4. PLAVIX [Suspect]
     Route: 048
  5. CRESTOR [Concomitant]
  6. HYDROCODONE [Concomitant]
     Dosage: 10/325MG 8 TOTAL DAILY
  7. LASIX [Concomitant]
     Dates: start: 20140408
  8. METOPROLOL [Concomitant]
  9. NITROGLYCERIN [Concomitant]
     Indication: CHEST PAIN
     Dosage: #3 WITHIN 15 MINUTES CALL 911
  10. SERTRALINE [Concomitant]
  11. ZOLPIDEM [Concomitant]
  12. DOXYLAMINE [Concomitant]
     Dosage: 25MG TWO A DAY OPTIONAL
  13. ACETAMINOPHEN W/DIPHENHYDRAMINE HYDROCHLORIDE [Concomitant]
     Dosage: EQUATE PM 500MG TWO A DAY OPTIONAL
  14. FIBER [Concomitant]
  15. FISH OIL [Concomitant]
  16. IRON [Concomitant]
     Dosage: ONE EVERY OTHER DAY
  17. L-TRYPTOPHAN [Concomitant]
  18. MAGNESIUM [Concomitant]
  19. MELATONIN [Concomitant]
  20. MULTIVITAMIN [Concomitant]
  21. PHENYLEPHRINE [Concomitant]
     Dosage: 1% NASAL SPRAY
  22. RED YEAST RICE [Concomitant]
  23. VITAMINS [Concomitant]
     Dosage: ^VISION VITAMIN^
  24. LISINOPRIL [Concomitant]
     Route: 048
  25. POTASSIUM [Concomitant]
     Dosage: GNP
     Route: 048

REACTIONS (11)
  - Gastrointestinal haemorrhage [Recovered/Resolved]
  - Anaemia [Recovered/Resolved]
  - Gingival bleeding [Recovered/Resolved]
  - Dizziness [Recovering/Resolving]
  - Hypotension [Not Recovered/Not Resolved]
  - Abdominal pain [Not Recovered/Not Resolved]
  - Dyspnoea [Not Recovered/Not Resolved]
  - Fatigue [Not Recovered/Not Resolved]
  - Restlessness [Not Recovered/Not Resolved]
  - Abasia [Not Recovered/Not Resolved]
  - Bedridden [Not Recovered/Not Resolved]
